FAERS Safety Report 8023654-X (Version None)
Quarter: 2012Q1

REPORT INFORMATION
  Report Type: 
  Country: None (occurrence: None)
  Receive Date: 20120104
  Receipt Date: 20120104
  Transmission Date: 20120608
  Serious: Yes (Other)
  Sender: FDA-Public Use
  Company Number: None

PATIENT
  Age: 54 Year
  Sex: Female

DRUGS (10)
  1. REVLIMID [Suspect]
     Indication: MYELODYSPLASTIC SYNDROME
     Dosage: REVLIMID 10 MG DAILY ORALLY
     Route: 048
     Dates: start: 20110801, end: 20111031
  2. ISOSORBIDE MONONITRATE [Concomitant]
  3. OMEPRAZOLE [Concomitant]
  4. OMEPRAZOLE [Concomitant]
  5. ASPIRIN [Concomitant]
  6. EZETIMIBE [Concomitant]
  7. NIACIN [Concomitant]
  8. DEFERASIROX [Concomitant]
  9. COLESTIPOL HYDROCHLORIDE [Concomitant]
  10. METFORMIN HCL [Concomitant]

REACTIONS (1)
  - THROMBOCYTOPENIA [None]
